FAERS Safety Report 6050883-7 (Version None)
Quarter: 2009Q1

REPORT INFORMATION
  Report Type: 
  Country: None (occurrence: None)
  Receive Date: 20090126
  Receipt Date: 20080509
  Transmission Date: 20090719
  Serious: No
  Sender: FDA-Public Use
  Company Number: US-TYCO HEALTHCARE/MALLINCKRODT-T200800811

PATIENT

DRUGS (2)
  1. OPTIRAY 300 [Suspect]
     Indication: COMPUTERISED TOMOGRAM
     Dosage: 98 ML, SINGLE
     Route: 042
     Dates: start: 20080508, end: 20080508
  2. ANTIBIOTICS [Concomitant]
     Indication: PRODUCTIVE COUGH
     Route: 048

REACTIONS (7)
  - BRONCHOSPASM [None]
  - EPISTAXIS [None]
  - HYPERSENSITIVITY [None]
  - NAUSEA [None]
  - PRURITUS [None]
  - RETCHING [None]
  - SNEEZING [None]
